FAERS Safety Report 10506019 (Version 1)
Quarter: 2014Q4

REPORT INFORMATION
  Report Type: Spontaneous
  Country: US (occurrence: US)
  Receive Date: 20141008
  Receipt Date: 20141008
  Transmission Date: 20150528
  Serious: No
  Sender: FDA-Public Use
  Company Number: US-009507513-1410USA000967

PATIENT
  Sex: Female

DRUGS (4)
  1. CARAFATE [Concomitant]
     Active Substance: SUCRALFATE
  2. PEGINTRON [Suspect]
     Active Substance: PEGINTERFERON ALFA-2B
     Indication: HEPATITIS C
     Dosage: DOSE/FREQUENCY: 150 MCG/0.5 ML ONCE A WEEK
     Route: 058
     Dates: start: 20140511
  3. REBETOL [Suspect]
     Active Substance: RIBAVIRIN
     Indication: HEPATITIS C
     Dosage: UNK
     Route: 048
  4. PROTONIX [Concomitant]
     Active Substance: PANTOPRAZOLE SODIUM

REACTIONS (4)
  - Dehydration [Recovered/Resolved]
  - White blood cell count decreased [Recovered/Resolved]
  - Peptic ulcer [Recovered/Resolved]
  - Alopecia [Recovered/Resolved]

NARRATIVE: CASE EVENT DATE: 2014
